FAERS Safety Report 9178384 (Version 1)
Quarter: 2013Q1

REPORT INFORMATION
  Report Type: Spontaneous
  Country: US (occurrence: US)
  Receive Date: 20130321
  Receipt Date: 20130321
  Transmission Date: 20140127
  Serious: Yes (Hospitalization)
  Sender: FDA-Public Use
  Company Number: US-BAYER-2013-032610

PATIENT
  Age: 52 Year
  Sex: Female

DRUGS (12)
  1. YASMIN [Suspect]
  2. CHLORDIAZEPOXIDE W/CLIDINIUM [Concomitant]
  3. DICYCLOMINE [Concomitant]
  4. SERTRALINE [Concomitant]
  5. LEVOTHYROXINE [Concomitant]
  6. PREVACID [Concomitant]
  7. AMBIEN [Concomitant]
     Dosage: AS NEEDED
     Dates: start: 20070809
  8. ZOLOFT [Concomitant]
  9. CEFZIL [Concomitant]
  10. LORTAB [Concomitant]
  11. SYNTHROID [Concomitant]
  12. VIVELLE [ETHINYLESTRADIOL,NORGESTIMATE] [Concomitant]

REACTIONS (2)
  - Pulmonary embolism [None]
  - Embolism venous [None]
